FAERS Safety Report 9706718 (Version 3)
Quarter: 2014Q4

REPORT INFORMATION
  Report Type: Spontaneous
  Country: US (occurrence: US)
  Receive Date: 20131125
  Receipt Date: 20141014
  Transmission Date: 20150529
  Serious: Yes (Hospitalization, Other)
  Sender: FDA-Public Use
  Company Number: US-BAYER-2013-141742

PATIENT
  Age: 34 Year
  Sex: Female
  Weight: 110.2 kg

DRUGS (1)
  1. MIRENA [Suspect]
     Active Substance: LEVONORGESTREL
     Indication: CONTRACEPTION
     Dosage: 20 MCG/24HR, CONT
     Route: 015
     Dates: start: 20090204, end: 20101220

REACTIONS (7)
  - Uterine perforation [None]
  - Complication of device removal [None]
  - Pain [None]
  - Emotional distress [None]
  - Off label use [None]
  - Device breakage [None]
  - Injury [None]

NARRATIVE: CASE EVENT DATE: 201008
